FAERS Safety Report 14769263 (Version 1)
Quarter: 2018Q2

REPORT INFORMATION
  Report Type: Spontaneous
  Country: US (occurrence: US)
  Receive Date: 20180417
  Receipt Date: 20180417
  Transmission Date: 20180711
  Serious: Yes (Hospitalization)
  Sender: FDA-Public Use
  Company Number: US-ELI_LILLY_AND_COMPANY-US201804003470

PATIENT
  Age: 76 Year
  Sex: Male

DRUGS (3)
  1. ELIQUIS [Concomitant]
     Active Substance: APIXABAN
     Indication: ATRIAL FIBRILLATION
     Dosage: UNK UNK, UNKNOWN
     Route: 065
  2. BASAGLAR [Suspect]
     Active Substance: INSULIN GLARGINE
     Indication: TYPE 2 DIABETES MELLITUS
     Dosage: 80 U, BID
     Route: 058
  3. TAMIFLU [Concomitant]
     Active Substance: OSELTAMIVIR PHOSPHATE
     Indication: ANTIVIRAL PROPHYLAXIS

REACTIONS (13)
  - Dizziness [Recovered/Resolved]
  - Fall [Unknown]
  - Constipation [Recovered/Resolved]
  - Cerebrovascular accident [Unknown]
  - Rhinorrhoea [Recovered/Resolved]
  - Blood glucose decreased [Recovered/Resolved]
  - Contusion [Unknown]
  - Cough [Recovered/Resolved]
  - Hypersensitivity [Recovered/Resolved]
  - Inappropriate schedule of drug administration [Unknown]
  - Decreased appetite [Unknown]
  - Somnolence [Unknown]
  - Eye disorder [Not Recovered/Not Resolved]

NARRATIVE: CASE EVENT DATE: 20171125
